FAERS Safety Report 5535511-9 (Version None)
Quarter: 2007Q4

REPORT INFORMATION
  Report Type: 
  Country: None (occurrence: None)
  Receive Date: 20071203
  Receipt Date: 20071203
  Transmission Date: 20080405
  Serious: No
  Sender: FDA-Public Use
  Company Number: None

PATIENT
  Age: 44 Year
  Sex: Female
  Weight: 90.7194 kg

DRUGS (1)
  1. LEVAQUIN 500MG. OTHO MCNEILL [Suspect]
     Indication: PNEUMONIA
     Dates: start: 20040627, end: 20040707

REACTIONS (1)
  - UNEVALUABLE EVENT [None]
